FAERS Safety Report 9032047 (Version 1)
Quarter: 2013Q1

REPORT INFORMATION
  Report Type: Spontaneous
  Country: CA (occurrence: CA)
  Receive Date: 20130125
  Receipt Date: 20130125
  Transmission Date: 20140127
  Serious: Yes (Other)
  Sender: FDA-Public Use
  Company Number: CA-US-EMD SERONO, INC.-7188839

PATIENT
  Age: 39 Year
  Sex: Female
  Weight: 52 kg

DRUGS (1)
  1. REBIF [Suspect]
     Indication: PRODUCT USED FOR UNKNOWN INDICATION
     Dosage: KIT
     Route: 058

REACTIONS (8)
  - Depressed level of consciousness [Recovered/Resolved]
  - Aphasia [Recovered/Resolved]
  - Dysphagia [Recovered/Resolved]
  - Heart rate increased [Recovered/Resolved]
  - Muscle spasms [Recovered/Resolved]
  - Muscular weakness [Recovered/Resolved]
  - Respiratory rate increased [Recovered/Resolved]
  - Pyrexia [Recovered/Resolved]
